FAERS Safety Report 4422284-6 (Version None)
Quarter: 2004Q3

REPORT INFORMATION
  Report Type: 
  Country: None (occurrence: None)
  Receive Date: 20040810
  Receipt Date: 20040709
  Transmission Date: 20050211
  Serious: Yes (Hospitalization)
  Sender: FDA-Public Use
  Company Number: FR-MERCK-0407FRA00022

PATIENT
  Age: 74 Year
  Sex: Male

DRUGS (5)
  1. ACENOCOUMAROL [Concomitant]
     Route: 048
  2. ACETAMINOPHEN [Concomitant]
     Route: 048
  3. BUMETANIDE [Concomitant]
     Route: 048
  4. INSULIN [Concomitant]
     Route: 065
  5. COZAAR [Suspect]
     Indication: HYPERTENSION
     Route: 048
     Dates: start: 20040702, end: 20040709

REACTIONS (4)
  - DRUG INEFFECTIVE [None]
  - HYPERTENSION [None]
  - PHARYNGEAL OEDEMA [None]
  - PULMONARY OEDEMA [None]
